FAERS Safety Report 4742410-9 (Version None)
Quarter: 2005Q3

REPORT INFORMATION
  Report Type: 
  Country: None (occurrence: None)
  Receive Date: 20050808
  Receipt Date: 20050721
  Transmission Date: 20060218
  Serious: Yes (Hospitalization)
  Sender: FDA-Public Use
  Company Number: US_0506118202

PATIENT
  Age: 48 Year
  Sex: Male

DRUGS (6)
  1. CYMBALTA [Suspect]
     Dosage: 60 MG/1 DAY
     Dates: start: 20050502, end: 20050515
  2. TRILEPTAL [Concomitant]
  3. KETOROLAC TROMETHAMINE [Concomitant]
  4. CELEBREX [Concomitant]
  5. SIRADALUD (TIZANIDINE HYDROCHLORIDE) [Concomitant]
  6. BETAMETHASONE DIPROPIONATE [Concomitant]

REACTIONS (6)
  - DRUG ERUPTION [None]
  - ENANTHEMA [None]
  - GENITAL LESION [None]
  - PAIN [None]
  - RASH ERYTHEMATOUS [None]
  - RASH VESICULAR [None]
